FAERS Safety Report 10156905 (Version 2)
Quarter: 2014Q2

REPORT INFORMATION
  Report Type: Spontaneous
  Country: FR (occurrence: FR)
  Receive Date: 20140507
  Receipt Date: 20140509
  Transmission Date: 20141212
  Serious: Yes (Other)
  Sender: FDA-Public Use
  Company Number: FR-JNJFOC-20140501032

PATIENT
  Sex: Female

DRUGS (2)
  1. XARELTO [Suspect]
     Indication: NEOPLASM MALIGNANT
     Route: 065
     Dates: start: 2013
  2. XARELTO [Suspect]
     Indication: THROMBOSIS PROPHYLAXIS
     Route: 065
     Dates: start: 2013

REACTIONS (1)
  - Neoplasm malignant [Unknown]
